FAERS Safety Report 5527493-0 (Version None)
Quarter: 2007Q4

REPORT INFORMATION
  Report Type: 
  Country: None (occurrence: None)
  Receive Date: 20071128
  Receipt Date: 20071120
  Transmission Date: 20080405
  Serious: Yes (Other)
  Sender: FDA-Public Use
  Company Number: FR-BRISTOL-MYERS SQUIBB COMPANY-13995014

PATIENT
  Age: 49 Year
  Sex: Male

DRUGS (1)
  1. VASTEN TABS 20 MG [Suspect]
     Indication: DYSLIPIDAEMIA
     Dosage: 10 MG/DAY SINCE 2003. IN 2004, DAILY DOSE WAS INCREASED TO 200MG FOR AN UNSPECIFIED REASON.
     Route: 048
     Dates: start: 20040101, end: 20071114

REACTIONS (3)
  - MUSCLE RUPTURE [None]
  - PAIN IN EXTREMITY [None]
  - TENDON RUPTURE [None]
